FAERS Safety Report 5997158-X (Version None)
Quarter: 2008Q4

REPORT INFORMATION
  Report Type: 
  Country: None (occurrence: None)
  Receive Date: 20081212
  Receipt Date: 20081103
  Transmission Date: 20090506
  Serious: No
  Sender: FDA-Public Use
  Company Number: US-ABBOTT-08P-163-0485499-00

PATIENT
  Sex: Female

DRUGS (7)
  1. HUMIRA [Suspect]
     Indication: JUVENILE ARTHRITIS
     Route: 058
     Dates: start: 20070101
  2. PREDNISONE TAB [Concomitant]
     Indication: JUVENILE ARTHRITIS
  3. LANSOPRAZOLE [Concomitant]
     Indication: DRUG USE FOR UNKNOWN INDICATION
  4. ZAROXOLYN [Concomitant]
     Indication: JUVENILE ARTHRITIS
  5. VASOTEC [Concomitant]
     Indication: JUVENILE ARTHRITIS
  6. POTASSIUM CHLORIDE [Concomitant]
     Indication: JUVENILE ARTHRITIS
  7. ACETYLSALICYLIC ACID SRT [Concomitant]
     Indication: JUVENILE ARTHRITIS
     Route: 048

REACTIONS (1)
  - INCORRECT DOSE ADMINISTERED [None]
